FAERS Safety Report 25929983 (Version 1)
Quarter: 2025Q4

REPORT INFORMATION
  Report Type: Spontaneous
  Country: EU (occurrence: EU)
  Receive Date: 20251016
  Receipt Date: 20251016
  Transmission Date: 20260117
  Serious: Yes (Other)
  Sender: MERCK SHARP & DOHME LLC
  Company Number: EU-009507513-2337608

PATIENT
  Sex: Female

DRUGS (1)
  1. KEYTRUDA [Suspect]
     Active Substance: PEMBROLIZUMAB
     Indication: Sinus cancer metastatic
     Dosage: TIME INTERVAL: CYCLICAL

REACTIONS (8)
  - Dementia [Unknown]
  - Aggression [Unknown]
  - Delusion [Unknown]
  - Eye disorder [Unknown]
  - Diplopia [Unknown]
  - Confusional state [Unknown]
  - Visual impairment [Unknown]
  - Off label use [Unknown]
